FAERS Safety Report 6638447-5 (Version None)
Quarter: 2010Q1

REPORT INFORMATION
  Report Type: 
  Country: None (occurrence: None)
  Receive Date: 20100316
  Receipt Date: 20100316
  Transmission Date: 20100710
  Serious: Yes (Other)
  Sender: FDA-Public Use
  Company Number: None

PATIENT
  Age: 66 Year
  Sex: Female
  Weight: 56.6996 kg

DRUGS (1)
  1. ZICAM - NASAL GEL - ZICAM LLC [Suspect]
     Indication: NASOPHARYNGITIS
     Dosage: SWAB 2 X DAILY NASAL
     Route: 045
     Dates: start: 20090425, end: 20090427

REACTIONS (2)
  - DYSGEUSIA [None]
  - PAROSMIA [None]
